FAERS Safety Report 25999663 (Version 1)
Quarter: 2025Q4

REPORT INFORMATION
  Report Type: Spontaneous
  Country: EU (occurrence: EU)
  Receive Date: 20251105
  Receipt Date: 20251105
  Transmission Date: 20260118
  Serious: Yes (Hospitalization)
  Sender: MACLEODS
  Company Number: EU-MLMSERVICE-20251020-PI681875-00323-1

PATIENT

DRUGS (4)
  1. TRIAMCINOLONE [Suspect]
     Active Substance: TRIAMCINOLONE
     Indication: Arthralgia
     Route: 014
  2. TRIAMCINOLONE [Suspect]
     Active Substance: TRIAMCINOLONE
     Indication: Arthralgia
  3. TRIAMCINOLONE [Suspect]
     Active Substance: TRIAMCINOLONE
     Indication: Arthralgia
  4. TRIAMCINOLONE [Suspect]
     Active Substance: TRIAMCINOLONE
     Indication: Arthralgia

REACTIONS (4)
  - Hypothalamic pituitary adrenal axis suppression [Recovering/Resolving]
  - Condition aggravated [Recovering/Resolving]
  - Unmasking of previously unidentified disease [Recovering/Resolving]
  - Secondary adrenocortical insufficiency [Recovering/Resolving]
